FAERS Safety Report 24333046 (Version 4)
Quarter: 2024Q4

REPORT INFORMATION
  Report Type: Spontaneous
  Country: JP (occurrence: JP)
  Receive Date: 20240918
  Receipt Date: 20241210
  Transmission Date: 20250114
  Serious: Yes (Disabling, Other)
  Sender: ELI LILLY AND COMPANY
  Company Number: JP-ELI_LILLY_AND_COMPANY-JP202409005269

PATIENT
  Age: 36 Year
  Sex: Female
  Weight: 143.4 kg

DRUGS (15)
  1. MOUNJARO [Suspect]
     Active Substance: TIRZEPATIDE
     Indication: Type 2 diabetes mellitus
     Dosage: 2.5 MG
     Route: 058
     Dates: start: 20231003, end: 20231025
  2. MOUNJARO [Suspect]
     Active Substance: TIRZEPATIDE
     Dosage: 5 MG
     Route: 058
     Dates: start: 20231031, end: 20240731
  3. MOUNJARO [Suspect]
     Active Substance: TIRZEPATIDE
     Dosage: 20 MG
     Route: 058
     Dates: start: 20240801, end: 20240801
  4. MIGLITOL [Suspect]
     Active Substance: MIGLITOL
     Indication: Intentional overdose
     Dosage: 6 DOSAGE FORM, DAILY
     Route: 048
     Dates: start: 20240801, end: 20240801
  5. MIGLITOL [Suspect]
     Active Substance: MIGLITOL
     Dosage: 300 MG
     Route: 048
     Dates: start: 20240809
  6. METFORMIN HYDROCHLORIDE [Suspect]
     Active Substance: METFORMIN HYDROCHLORIDE
     Indication: Product used for unknown indication
     Dosage: 1500 MG
     Route: 048
     Dates: start: 20240809
  7. METFORMIN HYDROCHLORIDE [Suspect]
     Active Substance: METFORMIN HYDROCHLORIDE
     Dosage: 500 MG
     Route: 048
     Dates: start: 20240813
  8. DEXTROMETHORPHAN [Concomitant]
     Active Substance: DEXTROMETHORPHAN
     Dosage: 270 MG, DAILY
     Route: 048
  9. EPRAZINONE [Concomitant]
     Active Substance: EPRAZINONE
     Dosage: 120 MG, DAILY
     Route: 048
  10. CARBOCYSTEINE [Concomitant]
     Active Substance: CARBOCYSTEINE
  11. AMBROXOL HYDROCHLORIDE [Concomitant]
     Active Substance: AMBROXOL HYDROCHLORIDE
     Dosage: 45 MG, DAILY
     Route: 048
  12. THEOPHYLLINE [Concomitant]
     Active Substance: THEOPHYLLINE
     Dosage: 400 MG, DAILY
     Route: 048
  13. ROSUVASTATIN [Concomitant]
     Active Substance: ROSUVASTATIN
     Dosage: 10 MG
     Route: 048
     Dates: start: 20240809
  14. GLYBURIDE [Concomitant]
     Active Substance: GLYBURIDE
     Dosage: 4 DOSAGE FORM
     Route: 048
     Dates: start: 20240809
  15. GLYBURIDE [Concomitant]
     Active Substance: GLYBURIDE
     Dosage: 5 DOSAGE FORM
     Route: 048
     Dates: start: 20240809

REACTIONS (7)
  - Suicide attempt [Recovered/Resolved]
  - Haematochezia [Recovering/Resolving]
  - Intentional overdose [Recovered/Resolved]
  - Weight decreased [Unknown]
  - Constipation [Unknown]
  - Diarrhoea [Unknown]
  - Abdominal pain [Unknown]

NARRATIVE: CASE EVENT DATE: 20240101
